FAERS Safety Report 5903982-1 (Version None)
Quarter: 2008Q3

REPORT INFORMATION
  Report Type: 
  Country: None (occurrence: None)
  Receive Date: 20080930
  Receipt Date: 20080926
  Transmission Date: 20090109
  Serious: Yes (Hospitalization, Other)
  Sender: FDA-Public Use
  Company Number: US-MERCK-0805USA00896

PATIENT
  Age: 56 Year
  Sex: Female

DRUGS (3)
  1. FOSAMAX [Suspect]
     Indication: OSTEOPENIA
     Route: 048
     Dates: start: 19970101, end: 19980101
  2. FOSAMAX [Suspect]
     Route: 048
     Dates: start: 20020101, end: 20040101
  3. ACTONEL [Suspect]
     Indication: OSTEOPENIA
     Route: 065
     Dates: start: 20040101, end: 20061102

REACTIONS (8)
  - JAW DISORDER [None]
  - KIDNEY INFECTION [None]
  - MOUTH ULCERATION [None]
  - OSTEONECROSIS [None]
  - OVARIAN CYST [None]
  - OVERDOSE [None]
  - PAIN IN JAW [None]
  - UTERINE LEIOMYOMA [None]
